FAERS Safety Report 5409310-2 (Version None)
Quarter: 2007Q3

REPORT INFORMATION
  Report Type: 
  Country: None (occurrence: None)
  Receive Date: 20070809
  Receipt Date: 20070523
  Transmission Date: 20080115
  Serious: Yes (Hospitalization, Other)
  Sender: FDA-Public Use
  Company Number: GR-NOVOPROD-266236

PATIENT
  Sex: Female
  Weight: 83 kg

DRUGS (1)
  1. NOVOLOG MIX 70/30 [Suspect]
     Indication: DRUG USE FOR UNKNOWN INDICATION
     Dosage: 42 IU, QD
     Dates: start: 20060905

REACTIONS (2)
  - PREGNANCY [None]
  - UMBILICAL CORD AROUND NECK [None]
